FAERS Safety Report 9724226 (Version 1)
Quarter: 2013Q4

REPORT INFORMATION
  Report Type: Spontaneous
  Country: US (occurrence: US)
  Receive Date: 20131202
  Receipt Date: 20131202
  Transmission Date: 20140711
  Serious: No
  Sender: FDA-Public Use
  Company Number: US-AMGEN-USASP2013080474

PATIENT
  Age: 65 Year
  Sex: Female

DRUGS (5)
  1. ENBREL [Suspect]
     Indication: PSORIASIS
     Dosage: 50 MG, 2 TIMES/WK
     Route: 065
     Dates: start: 20131022
  2. ENBREL [Suspect]
     Indication: PUSTULAR PSORIASIS
  3. CLONIDINE                          /00171102/ [Concomitant]
     Dosage: 0.1 MG, UNK
  4. ATENOLOL [Concomitant]
     Dosage: 100 MG, UNK
  5. BENICAR [Concomitant]
     Dosage: 40 MG, UNK

REACTIONS (4)
  - Dizziness [Not Recovered/Not Resolved]
  - Blood pressure increased [Not Recovered/Not Resolved]
  - Oropharyngeal pain [Not Recovered/Not Resolved]
  - Cough [Not Recovered/Not Resolved]
